FAERS Safety Report 24574678 (Version 1)
Quarter: 2024Q4

REPORT INFORMATION
  Report Type: Spontaneous
  Country: US (occurrence: US)
  Receive Date: 20241104
  Receipt Date: 20241104
  Transmission Date: 20250115
  Serious: No
  Sender: ELI LILLY AND COMPANY
  Company Number: US-ELI_LILLY_AND_COMPANY-US202411000297

PATIENT
  Sex: Male

DRUGS (2)
  1. JAYPIRCA [Suspect]
     Active Substance: PIRTOBRUTINIB
     Indication: Chronic lymphocytic leukaemia
     Dosage: 200 MG, DAILY
     Route: 065
  2. JAYPIRCA [Suspect]
     Active Substance: PIRTOBRUTINIB
     Dosage: 100 MG, DAILY
     Route: 065

REACTIONS (1)
  - Oedema peripheral [Recovered/Resolved]
